FAERS Safety Report 6921140-9 (Version None)
Quarter: 2010Q3

REPORT INFORMATION
  Report Type: 
  Country: None (occurrence: None)
  Receive Date: 20100812
  Receipt Date: 20100805
  Transmission Date: 20110219
  Serious: Yes (Hospitalization)
  Sender: FDA-Public Use
  Company Number: DK-B.I. PHARMACEUTICALS,INC./RIDGEFIELD-2010-DE-04266GD

PATIENT

DRUGS (2)
  1. DIPYRIDAMOLE [Suspect]
  2. ACETYLSALICYLIC ACID SRT [Suspect]
     Dosage: LOW DOSE

REACTIONS (1)
  - SUBARACHNOID HAEMORRHAGE [None]
